APPROVED DRUG PRODUCT: BENAZEPRIL HYDROCHLORIDE AND HYDROCHLOROTHIAZIDE
Active Ingredient: BENAZEPRIL HYDROCHLORIDE; HYDROCHLOROTHIAZIDE
Strength: 10MG;12.5MG
Dosage Form/Route: TABLET;ORAL
Application: A077483 | Product #002
Applicant: SUN PHARMACEUTICAL INDUSTRIES LTD
Approved: Sep 8, 2005 | RLD: No | RS: No | Type: DISCN